FAERS Safety Report 5196441-8 (Version None)
Quarter: 2006Q4

REPORT INFORMATION
  Report Type: 
  Country: None (occurrence: None)
  Receive Date: 20061226
  Receipt Date: 20061219
  Transmission Date: 20070319
  Serious: Yes (Hospitalization)
  Sender: FDA-Public Use
  Company Number: S06-FRA-04637-01

PATIENT
  Age: 93 Year
  Sex: Female

DRUGS (10)
  1. CITALOPRAM HYDROBROMIDE [Suspect]
     Dosage: 20 MG QD PO
     Route: 048
     Dates: start: 20060925, end: 20061003
  2. PRIMPERAN TAB [Suspect]
     Dosage: 15 MG QD PO
     Route: 048
     Dates: start: 20060918, end: 20061003
  3. DAFALGAN (PARACETAMOL0 [Suspect]
     Dosage: 3000 MG QD PO
     Route: 048
     Dates: end: 20061003
  4. FLUCONAZOLE [Suspect]
     Dosage: 50 MG QD PO
     Route: 048
     Dates: start: 20060925, end: 20061003
  5. NORFLOXACIN [Suspect]
     Dosage: 400 MG BID PO
     Route: 048
     Dates: start: 20061002, end: 20061003
  6. ASPIRIN [Suspect]
     Dosage: 300 MG QD PO
     Route: 048
     Dates: end: 20061003
  7. VASTAREL (TRIMETAZIDINE HYDROCHLORIDE) [Suspect]
     Dates: end: 20061003
  8. LASIX [Concomitant]
  9. SERC (THIORIDAZINE) [Concomitant]
  10. RAMIPRIL [Concomitant]

REACTIONS (1)
  - GASTRIC ULCER HAEMORRHAGE [None]
